FAERS Safety Report 5507642-0 (Version None)
Quarter: 2007Q4

REPORT INFORMATION
  Report Type: 
  Country: None (occurrence: None)
  Receive Date: 20071106
  Receipt Date: 20071026
  Transmission Date: 20080405
  Serious: Yes (Hospitalization)
  Sender: FDA-Public Use
  Company Number: JP-NOVOPROD-257369

PATIENT
  Age: 68 Year
  Sex: Male
  Weight: 71 kg

DRUGS (16)
  1. NOVORAPID CHU FLEXPEN [Suspect]
     Dosage: 78 IU, QD
     Route: 058
     Dates: start: 20051201, end: 20060918
  2. NOVOLIN N [Suspect]
     Dosage: 4 IU, QD
     Route: 058
     Dates: start: 20051201, end: 20060924
  3. NOVORAPID 30 MIX CHU FLEXPEN [Suspect]
     Dosage: 44 IU, QD
     Route: 058
     Dates: start: 20060821, end: 20060913
  4. NOVOLIN R [Suspect]
     Dosage: 60 IU, QD
     Route: 058
     Dates: start: 20060919
  5. NOVOLIN R [Suspect]
     Dosage: 34 IU, QD
     Route: 058
     Dates: start: 20050801, end: 20051130
  6. CRAVIT [Concomitant]
     Dosage: 300 MG, QD
     Route: 048
     Dates: start: 20051024, end: 20051104
  7. MUCOSOLVAN                         /00546001/ [Concomitant]
     Dosage: 45 MG, QD
     Route: 048
     Dates: start: 20051003, end: 20060529
  8. PREDNISOLONE [Concomitant]
     Dosage: 5 MG, QD
     Route: 048
     Dates: start: 20051031, end: 20060226
  9. SELBEX [Concomitant]
     Dosage: 150 MG, QD
     Route: 048
     Dates: start: 20051031, end: 20060226
  10. DIGOSIN [Concomitant]
     Dosage: .125 MG, QD
     Route: 048
     Dates: start: 20020101
  11. TORSEMIDE [Concomitant]
     Dosage: 4 MG, QD
     Route: 048
     Dates: start: 20020101
  12. COVERSYL                           /00790701/ [Concomitant]
     Dosage: 4 MG, QD
     Route: 048
     Dates: start: 20020101
  13. ALDACTONE [Concomitant]
     Dosage: 25 MG, QD
     Route: 048
     Dates: start: 20020101
  14. WARFARIN SODIUM [Concomitant]
     Dosage: 3-3.5 MG
     Route: 048
     Dates: start: 20020101
  15. TRICHLORMETHIAZIDE [Concomitant]
     Dosage: 1 MG, QD
     Route: 048
     Dates: start: 20060228, end: 20060913
  16. MUCODYNE [Concomitant]
     Dosage: 1500 MG, QD
     Route: 048
     Dates: start: 20050530

REACTIONS (4)
  - ANTI-INSULIN ANTIBODY [None]
  - BLOOD GLUCOSE INCREASED [None]
  - INJECTION SITE PAIN [None]
  - PANNICULITIS [None]
